FAERS Safety Report 19198421 (Version 1)
Quarter: 2021Q2

REPORT INFORMATION
  Report Type: Spontaneous
  Country: IN (occurrence: IN)
  Receive Date: 20210430
  Receipt Date: 20210430
  Transmission Date: 20210717
  Serious: Yes (Other)
  Sender: FDA-Public Use
  Company Number: IN-FRESENIUS KABI-FK202104382

PATIENT
  Age: 8 Year
  Sex: Male

DRUGS (4)
  1. NEOSTIGMINE (MANUFACTURER UNKNOWN) [Suspect]
     Active Substance: NEOSTIGMINE
     Indication: SNAKE BITE
     Route: 042
  2. IMMUNOGLOBULIN ANTIVENOM BROWN SNAKE/IMMUNOGLOBULIN ANTIVENOM DEATH ADDER/IMMUNOGLOBULIN ANTIVENOM T [Concomitant]
     Indication: SNAKE BITE
     Dosage: 25 VIALS
     Route: 065
  3. NEOSTIGMINE (MANUFACTURER UNKNOWN) [Suspect]
     Active Substance: NEOSTIGMINE
     Dosage: IN SUBSEQUENT DOSES
     Route: 042
  4. ATROPINE. [Concomitant]
     Active Substance: ATROPINE
     Indication: SNAKE BITE
     Route: 065

REACTIONS (4)
  - Paralysis [Recovered/Resolved]
  - Muscular weakness [Recovered/Resolved]
  - Condition aggravated [Recovered/Resolved]
  - Inappropriate schedule of product administration [Recovered/Resolved]
